FAERS Safety Report 8493426-0 (Version None)
Quarter: 2012Q3

REPORT INFORMATION
  Report Type: 
  Country: None (occurrence: None)
  Receive Date: 20120706
  Receipt Date: 20120626
  Transmission Date: 20120928
  Serious: Yes (Hospitalization)
  Sender: FDA-Public Use
  Company Number: JP-VERTEX PHARMACEUTICALS INC.-AE-2012-007161

PATIENT
  Sex: Male

DRUGS (14)
  1. PEG-INTRON [Concomitant]
     Dates: start: 20120509, end: 20120514
  2. REBETOL [Concomitant]
     Dates: start: 20120509, end: 20120514
  3. PEG-INTRON [Concomitant]
     Route: 058
     Dates: start: 20061110, end: 20070426
  4. URSO 250 [Concomitant]
  5. VX-950 [Suspect]
     Indication: HEPATITIS C
     Route: 048
     Dates: start: 20120509, end: 20120514
  6. REBETOL [Concomitant]
     Route: 048
     Dates: start: 20061110, end: 20070426
  7. ALLOPURINOL [Concomitant]
     Dates: start: 20120528
  8. LENDORMIN [Concomitant]
  9. REBETOL [Concomitant]
     Route: 048
     Dates: start: 20070928, end: 20090206
  10. ALLOPURINOL [Concomitant]
     Dates: end: 20120514
  11. PEG-INTRON [Concomitant]
     Route: 058
     Dates: start: 20070928, end: 20090206
  12. LOXONIN [Concomitant]
     Dates: start: 20120510
  13. CONIEL [Concomitant]
  14. VITAMEDIN [Concomitant]

REACTIONS (1)
  - RENAL IMPAIRMENT [None]
